FAERS Safety Report 7410065-0 (Version None)
Quarter: 2011Q2

REPORT INFORMATION
  Report Type: 
  Country: None (occurrence: None)
  Receive Date: 20110412
  Receipt Date: 20110330
  Transmission Date: 20111010
  Serious: Yes (Hospitalization, Other)
  Sender: FDA-Public Use
  Company Number: US-ELI_LILLY_AND_COMPANY-US201104000728

PATIENT
  Sex: Male

DRUGS (27)
  1. OXYCONTIN [Concomitant]
     Dosage: 80 MG, EVERY 8 HRS
     Route: 065
  2. PANTOPRAZOLE [Concomitant]
     Dosage: 40 MG, BID
     Route: 065
  3. COLACE [Concomitant]
     Dosage: UNK, EACH MORNING
     Route: 065
  4. FORTEO [Suspect]
     Indication: OSTEOPOROSIS
     Dosage: 20 UG, QD
     Route: 065
     Dates: start: 20100701
  5. LIPITOR [Concomitant]
     Dosage: 40 MG, EACH EVENING
     Route: 065
  6. VITAMIN B-12 [Concomitant]
     Dosage: UNK, EACH MORNING
     Route: 065
  7. VITAMIN D [Concomitant]
     Dosage: 1000 IU, EACH MORNING
     Route: 065
  8. POLYETHYLENE GLYCOL [Concomitant]
     Indication: CONSTIPATION
     Dosage: UNK
     Route: 065
  9. MAGNESIUM HYDROXIDE [Concomitant]
     Dosage: UNK
     Route: 065
  10. MAALOX [Concomitant]
     Indication: DYSPEPSIA
     Dosage: UNK UNK, PRN
     Route: 065
  11. METOPROLOL TARTRATE [Concomitant]
     Dosage: 75 MG, BID
     Route: 065
  12. ASPIRIN [Concomitant]
     Dosage: 81 MG, EACH EVENING
     Route: 065
  13. CALCIUM +VIT D [Concomitant]
     Dosage: UNK MG, UNK
     Route: 065
  14. MULTI-VITAMIN [Concomitant]
     Dosage: UNK, EACH MORNING
     Route: 065
  15. HORSE CHESTNUT EXTRACT [Concomitant]
     Indication: PAIN IN EXTREMITY
     Dosage: UNK
     Route: 065
  16. ZETIA [Concomitant]
     Dosage: 10 MG, EACH EVENING
     Route: 065
  17. POTASSIUM CHLORIDE [Concomitant]
     Dosage: 80 MG, BID
     Route: 065
  18. ANDROGEL [Concomitant]
     Indication: BLOOD TESTOSTERONE DECREASED
     Dosage: 1 %, UNK
     Route: 065
  19. VITAMIN B-COMPLEX, OTHER COMBINATIONS [Concomitant]
     Dosage: UNK, EACH MORNING
  20. ISOSORBID MONONITRATE [Concomitant]
     Dosage: 60 MG, EACH MORNING
     Route: 065
  21. VALTREX [Concomitant]
     Dosage: 500 MG, BID
     Route: 065
  22. OXYCODONE [Concomitant]
     Indication: PAIN
     Dosage: 30 MG, PRN
     Route: 065
  23. RAMIPRIL [Concomitant]
     Dosage: 5 MG, BID
     Route: 065
  24. FUROSEMIDE [Concomitant]
     Dosage: 80 MG, EACH MORNING
     Route: 065
  25. COUMADIN [Concomitant]
     Dosage: 5 MG, EACH EVENING
     Route: 065
  26. AMLODIPINE [Concomitant]
     Dosage: 5 MG, EACH MORNING
     Route: 065
  27. PLAVIX [Concomitant]
     Dosage: UNK
     Route: 065

REACTIONS (7)
  - TOOTH ABSCESS [None]
  - TOOTH FRACTURE [None]
  - THROMBOSIS [None]
  - MYOCARDIAL INFARCTION [None]
  - POST PROCEDURAL HAEMORRHAGE [None]
  - FATIGUE [None]
  - CONDITION AGGRAVATED [None]
